FAERS Safety Report 8439286-5 (Version None)
Quarter: 2012Q2

REPORT INFORMATION
  Report Type: 
  Country: None (occurrence: None)
  Receive Date: 20120615
  Receipt Date: 20120611
  Transmission Date: 20120825
  Serious: Yes (Hospitalization, Other)
  Sender: FDA-Public Use
  Company Number: PHHY2012JP029317

PATIENT
  Sex: Male
  Weight: 73 kg

DRUGS (14)
  1. PENTASA [Concomitant]
     Dosage: 3 G, UNK
     Route: 048
     Dates: start: 20090903
  2. FIRSTCIN [Concomitant]
     Dosage: 4 G, UNK
  3. EXJADE [Suspect]
     Dosage: 1500 MG, DAILY
     Route: 048
     Dates: start: 20100721, end: 20110414
  4. CEFAZOLIN SODIUM [Concomitant]
     Dosage: 6 MG, UNK
     Route: 048
     Dates: start: 20090903
  5. FIRSTCIN [Concomitant]
     Dosage: 4 G, UNK
  6. FIRSTCIN [Concomitant]
     Dosage: 4 G, UNK
  7. ELENTAL [Concomitant]
     Dosage: 320 G, UNK
     Route: 048
     Dates: start: 20091115, end: 20110413
  8. DAIO-KANZO-TO [Concomitant]
     Dosage: 7.5 G, UNK
     Route: 048
     Dates: start: 20100415, end: 20100921
  9. EXJADE [Suspect]
     Indication: IRON OVERLOAD
     Dosage: 1000 MG, DAILY
     Route: 048
     Dates: start: 20100414, end: 20100720
  10. COTRIM [Concomitant]
     Indication: PROPHYLAXIS
     Dosage: 1 DF, UNK
     Route: 048
     Dates: start: 20081016
  11. FIRSTCIN [Concomitant]
     Dosage: 4 G, UNK
     Dates: start: 20100514
  12. FIRSTCIN [Concomitant]
     Dosage: 4 G, UNK
  13. MAXIPIME [Concomitant]
     Dosage: 4 G, UNK
     Dates: start: 20110228, end: 20110306
  14. ADONA [Concomitant]
     Dosage: 50 MG, UNK
     Dates: start: 20110212, end: 20110219

REACTIONS (7)
  - DIARRHOEA [None]
  - CROHN'S DISEASE [None]
  - MOUTH HAEMORRHAGE [None]
  - HAEMATEMESIS [None]
  - PLATELET COUNT DECREASED [None]
  - HAEMATURIA [None]
  - SERUM FERRITIN INCREASED [None]
